FAERS Safety Report 24303483 (Version 1)
Quarter: 2024Q3

REPORT INFORMATION
  Report Type: Spontaneous
  Country: CH (occurrence: CH)
  Receive Date: 20240910
  Receipt Date: 20240910
  Transmission Date: 20241017
  Serious: Yes (Other)
  Sender: MYLAN
  Company Number: CH-MYLANLABS-2024M1082294

PATIENT
  Age: 20 Year
  Sex: Male

DRUGS (2)
  1. ARIPIPRAZOLE [Suspect]
     Active Substance: ARIPIPRAZOLE
     Indication: Schizophrenia
     Dosage: 30 MILLIGRAM, QD
     Route: 065
  2. CLOZAPINE [Suspect]
     Active Substance: CLOZAPINE
     Indication: Schizophrenia
     Dosage: 400 MILLIGRAM, QD
     Route: 065

REACTIONS (3)
  - Drug ineffective [Unknown]
  - Sedation [Unknown]
  - Salivary hypersecretion [Unknown]
